FAERS Safety Report 8961928 (Version 5)
Quarter: 2013Q1

REPORT INFORMATION
  Report Type: Spontaneous
  Country: US (occurrence: US)
  Receive Date: 20121213
  Receipt Date: 20130304
  Transmission Date: 20140127
  Serious: Yes (Hospitalization)
  Sender: FDA-Public Use
  Company Number: US-BIOGENIDEC-2012BI057419

PATIENT
  Age: 44 Year
  Sex: Female

DRUGS (2)
  1. AVONEX [Suspect]
     Indication: MULTIPLE SCLEROSIS
     Route: 030
     Dates: start: 20011101
  2. AVONEX [Suspect]
     Indication: MULTIPLE SCLEROSIS
     Route: 030
     Dates: start: 20090709

REACTIONS (4)
  - Hip fracture [Recovered/Resolved]
  - Fall [Recovered/Resolved]
  - Migraine [Recovered/Resolved]
  - Asthenia [Recovered/Resolved]
